FAERS Safety Report 20529761 (Version 2)
Quarter: 2022Q2

REPORT INFORMATION
  Report Type: Spontaneous
  Country: CO (occurrence: CO)
  Receive Date: 20220301
  Receipt Date: 20220405
  Transmission Date: 20220721
  Serious: Yes (Other)
  Sender: FDA-Public Use
  Company Number: CO-PFIZER INC-2021488063

PATIENT
  Age: 34 Year
  Sex: Male

DRUGS (2)
  1. ENBREL [Suspect]
     Active Substance: ETANERCEPT
     Indication: Ankylosing spondylitis
     Dosage: 50 MG, WEEKLY
     Route: 058
     Dates: start: 20210210
  2. ENBREL [Suspect]
     Active Substance: ETANERCEPT
     Dosage: 50 MG, UNSPECIFIED FREQUENCY
     Route: 058
     Dates: start: 202104

REACTIONS (5)
  - COVID-19 [Unknown]
  - Decreased immune responsiveness [Unknown]
  - Malaise [Unknown]
  - Product dose omission issue [Unknown]
  - Product dispensing issue [Unknown]
